FAERS Safety Report 11833594 (Version 1)
Quarter: 2015Q4

REPORT INFORMATION
  Report Type: Spontaneous
  Country: PT (occurrence: PT)
  Receive Date: 20151214
  Receipt Date: 20151214
  Transmission Date: 20160305
  Serious: Yes (Life-Threatening)
  Sender: FDA-Public Use
  Company Number: PT-DEP_03172_2015

PATIENT
  Age: 85 Year
  Sex: Female

DRUGS (5)
  1. ENALAPRIL (ENALAPRIL) [Concomitant]
     Active Substance: ENALAPRIL
     Dosage: DF
  2. VISACOR /01588602/ (ROSUVASTATIN CALCIUM) [Concomitant]
  3. METFORMINA /00082701/ (METFORMIN) [Concomitant]
  4. PALEXIA [Suspect]
     Active Substance: TAPENTADOL HYDROCHLORIDE
     Indication: PRODUCT USED FOR UNKNOWN INDICATION
     Dosage: DF
     Route: 048
     Dates: start: 20150605, end: 20150612
  5. VARFINE (WARFARIN SODIUM) [Suspect]
     Active Substance: WARFARIN SODIUM
     Indication: PRODUCT USED FOR UNKNOWN INDICATION
     Dosage: DF
     Route: 048
     Dates: end: 20150612

REACTIONS (1)
  - Haemorrhagic stroke [Unknown]

NARRATIVE: CASE EVENT DATE: 20150612
